FAERS Safety Report 10177325 (Version 1)
Quarter: 2014Q2

REPORT INFORMATION
  Report Type: Spontaneous
  Country: DK (occurrence: DK)
  Receive Date: 20140516
  Receipt Date: 20140516
  Transmission Date: 20141212
  Serious: Yes (Life-Threatening, Hospitalization)
  Sender: FDA-Public Use
  Company Number: DK-ASTRAZENECA-2014SE32868

PATIENT
  Age: 79 Year
  Sex: Male

DRUGS (12)
  1. BRILIQUE [Suspect]
     Indication: ISCHAEMIC HEART DISEASE PROPHYLAXIS
     Route: 048
     Dates: start: 20140120, end: 20140220
  2. MAGNYL DAK [Suspect]
     Indication: THROMBOSIS PROPHYLAXIS
     Route: 048
     Dates: end: 20140220
  3. ANCOZAN [Concomitant]
  4. DIAZEPAM [Concomitant]
  5. HALCION [Concomitant]
  6. KALEORID [Concomitant]
  7. LAXOBERAL [Concomitant]
  8. MOVICOL [Concomitant]
  9. PINEX [Concomitant]
  10. SIMVASTATIN [Concomitant]
  11. SELO-ZOK [Concomitant]
  12. SPIRIX [Concomitant]

REACTIONS (4)
  - Blood pressure decreased [Unknown]
  - Gastrointestinal haemorrhage [Unknown]
  - Haematemesis [Unknown]
  - Melaena [Unknown]
